FAERS Safety Report 25989947 (Version 1)
Quarter: 2025Q4

REPORT INFORMATION
  Report Type: Spontaneous
  Country: CA (occurrence: None)
  Receive Date: 20251101
  Receipt Date: 20251101
  Transmission Date: 20260118
  Serious: Yes (Disabling)
  Sender: FDA-CTU
  Company Number: None

PATIENT
  Age: 30 Year
  Sex: Female
  Weight: 48.15 kg

DRUGS (6)
  1. CLOMIPRAMINE HYDROCHLORIDE [Suspect]
     Active Substance: CLOMIPRAMINE HYDROCHLORIDE
     Indication: Insomnia
     Dosage: OTHER QUANTITY : 3 CAPSULE(S);?FREQUENCY : AT BEDTIME;?
     Route: 048
     Dates: start: 20150506, end: 20240802
  2. CLOMIPRAMINE HYDROCHLORIDE [Suspect]
     Active Substance: CLOMIPRAMINE HYDROCHLORIDE
     Indication: Obsessive-compulsive disorder
  3. CLOMIPRAMINE [Concomitant]
     Active Substance: CLOMIPRAMINE
  4. TRAZODONE [Concomitant]
     Active Substance: TRAZODONE HYDROCHLORIDE
  5. ZOPICLONE [Concomitant]
     Active Substance: ZOPICLONE
  6. AJOVY [Concomitant]
     Active Substance: FREMANEZUMAB-VFRM

REACTIONS (15)
  - Genital hypoaesthesia [None]
  - Weight increased [None]
  - Withdrawal syndrome [None]
  - Akathisia [None]
  - Skin burning sensation [None]
  - Paraesthesia [None]
  - Vomiting [None]
  - Abdominal discomfort [None]
  - Agitation [None]
  - Crying [None]
  - Sleep terror [None]
  - Fatigue [None]
  - Depersonalisation/derealisation disorder [None]
  - Catatonia [None]
  - Bedridden [None]

NARRATIVE: CASE EVENT DATE: 20240815
